FAERS Safety Report 17204793 (Version 1)
Quarter: 2019Q4

REPORT INFORMATION
  Report Type: Spontaneous
  Country: CN (occurrence: CN)
  Receive Date: 20191226
  Receipt Date: 20191226
  Transmission Date: 20200122
  Serious: Yes (Hospitalization)
  Sender: FDA-Public Use
  Company Number: CN-BAXTER-2019BAX026059

PATIENT
  Age: 20 Year
  Sex: Male
  Weight: 57.5 kg

DRUGS (18)
  1. HOLOXAN [Suspect]
     Active Substance: IFOSFAMIDE
     Dosage: DOSE RE-INTRODUCED; HOLOXAN (IFO) + NS
     Route: 041
  2. 0.9% SODIUM CHLORIDE INJECTION [Suspect]
     Active Substance: SODIUM CHLORIDE
     Dosage: NUO XIN (DDP) 90 MG + NS 30 ML (CONCENTRATED) + NS 500ML
     Route: 041
     Dates: start: 20191103, end: 20191103
  3. 0.9% SODIUM CHLORIDE INJECTION [Suspect]
     Active Substance: SODIUM CHLORIDE
     Dosage: NUO XIN 70 MG + NS 30 ML (CONCENTRATED) + NS 500ML
     Route: 041
     Dates: start: 20191103, end: 20191103
  4. 5% GLUCOSE  INJECTION [Suspect]
     Active Substance: DEXTROSE
     Indication: MEDICATION DILUTION
     Dosage: DOXORUBICIN HYDROCHLORIDE 98 MG + STERILE WATER FOR INJECTION 45 ML + GS 500 ML
     Route: 041
     Dates: start: 20191107, end: 20191107
  5. 5% GLUCOSE  INJECTION [Suspect]
     Active Substance: DEXTROSE
     Dosage: DOSE RE-INTRODUCED; DOXORUBICIN HYDROCHLORIDE + STERILE WATER FOR INJECTION + GS
     Route: 041
  6. NUO XIN [Suspect]
     Active Substance: CISPLATIN
     Indication: OSTEOSARCOMA
     Dosage: NUO XIN (DDP) 90 MG + NS 30ML (CONCENTRATED) + NS 500ML
     Route: 041
     Dates: start: 20191103, end: 20191103
  7. NUO XIN [Suspect]
     Active Substance: CISPLATIN
     Dosage: NUO XIN (DDP) 70 MG + NS 30ML (CONCENTRATED) + NS 500ML
     Route: 041
     Dates: start: 20191103, end: 20191103
  8. 0.9% SODIUM CHLORIDE INJECTION [Suspect]
     Active Substance: SODIUM CHLORIDE
     Dosage: DOSE RE-INTRODUCED, HOLOXAN (IFO) + NS
     Route: 041
  9. 0.9% SODIUM CHLORIDE INJECTION [Suspect]
     Active Substance: SODIUM CHLORIDE
     Dosage: NUO XIN 70 MG + NS 30 ML (CONCENTRATED) + NS 500ML
     Route: 041
     Dates: start: 20191103, end: 20191103
  10. HOLOXAN [Suspect]
     Active Substance: IFOSFAMIDE
     Indication: OSTEOSARCOMA
     Dosage: HOLOXAN (IFO) 4.9 GRAM + NS 500 ML
     Route: 041
     Dates: start: 20191022, end: 20191026
  11. STERILE WATER FOR INJECTION [Suspect]
     Active Substance: WATER
     Indication: MEDICATION DILUTION
     Dosage: DOXORUBICIN HYDROCHLORIDE 98 MG + STERILE WATER FOR INJECTION 45 ML + GS 500 ML
     Route: 041
  12. STERILE WATER FOR INJECTION [Suspect]
     Active Substance: WATER
     Dosage: DOSE RE-INTRODUCED; DOXORUBICIN HYDROCHLORIDE + STERILE WATER FOR INJECTION + GS
     Route: 041
  13. DOXORUBICIN HYDROCHLORIDE. [Suspect]
     Active Substance: DOXORUBICIN HYDROCHLORIDE
     Dosage: DOSE RE-INTRODUCED; DOXORUBICIN HYDROCHLORIDE (ADM) + STERILE WATER FOR INJECTION + GS
     Route: 041
  14. 0.9% SODIUM CHLORIDE INJECTION [Suspect]
     Active Substance: SODIUM CHLORIDE
     Indication: MEDICATION DILUTION
     Dosage: HOLOXAN (IFO) 4.9 GRAM + NS 500 ML
     Route: 041
     Dates: start: 20191022, end: 20191026
  15. 0.9% SODIUM CHLORIDE INJECTION [Suspect]
     Active Substance: SODIUM CHLORIDE
     Dosage: NUO XIN (DDP) 90 MG + NS 30 ML (CONCENTRATED) + NS 500ML
     Route: 041
     Dates: start: 20191103, end: 20191103
  16. 0.9% SODIUM CHLORIDE INJECTION [Suspect]
     Active Substance: SODIUM CHLORIDE
     Dosage: DOSE RE-INTRODUCED: NUO XIN (DDP) + NS (CONCENTRATED) + NS
     Route: 041
  17. DOXORUBICIN HYDROCHLORIDE. [Suspect]
     Active Substance: DOXORUBICIN HYDROCHLORIDE
     Indication: OSTEOSARCOMA
     Dosage: DOXORUBICIN HYDROCHLORIDE (ADM) 98 MG + STERILE WATER FOR INJECTION 45ML + GS 500ML
     Route: 041
     Dates: start: 20191107, end: 20191107
  18. NUO XIN [Suspect]
     Active Substance: CISPLATIN
     Dosage: DOSE RE-INTRODUCED; NUO XIN (DDP) + NS + NS
     Route: 041

REACTIONS (1)
  - Bone marrow failure [Recovering/Resolving]

NARRATIVE: CASE EVENT DATE: 20191117
